FAERS Safety Report 5845240-X (Version None)
Quarter: 2008Q3

REPORT INFORMATION
  Report Type: 
  Country: None (occurrence: None)
  Receive Date: 20080814
  Receipt Date: 20080804
  Transmission Date: 20090109
  Serious: Yes (Life-Threatening, Hospitalization)
  Sender: FDA-Public Use
  Company Number: B0531981A

PATIENT
  Sex: Female

DRUGS (8)
  1. AVANDIA [Suspect]
     Dates: start: 20061001, end: 20070216
  2. ZANIDIP [Suspect]
     Indication: DRUG USE FOR UNKNOWN INDICATION
     Dates: start: 20061001, end: 20070216
  3. EFFEXOR [Suspect]
     Indication: DRUG USE FOR UNKNOWN INDICATION
     Dates: start: 20061001
  4. MEPRONIZINE [Suspect]
     Indication: DRUG USE FOR UNKNOWN INDICATION
  5. ALDOMET [Suspect]
     Indication: DRUG USE FOR UNKNOWN INDICATION
     Dosage: 750MG PER DAY
     Dates: start: 20070220, end: 20070428
  6. INSULIN [Concomitant]
     Indication: DRUG USE FOR UNKNOWN INDICATION
  7. TRANDATE [Concomitant]
     Indication: DRUG USE FOR UNKNOWN INDICATION
  8. LOXEN [Concomitant]
     Indication: DRUG USE FOR UNKNOWN INDICATION

REACTIONS (15)
  - BRONCHOPULMONARY DYSPLASIA [None]
  - CONJUNCTIVITIS [None]
  - DRUG EXPOSURE DURING PREGNANCY [None]
  - FOETAL ARRHYTHMIA [None]
  - FOETAL GROWTH RETARDATION [None]
  - HYPOTONIA NEONATAL [None]
  - JAUNDICE NEONATAL [None]
  - NEONATAL RESPIRATORY DISTRESS SYNDROME [None]
  - OLIGOHYDRAMNIOS [None]
  - OMPHALITIS [None]
  - PATENT DUCTUS ARTERIOSUS [None]
  - PREMATURE BABY [None]
  - PULMONARY ARTERIAL HYPERTENSION [None]
  - STAPHYLOCOCCAL SEPSIS [None]
  - UMBILICAL CORD ABNORMALITY [None]
